FAERS Safety Report 10224966 (Version 1)
Quarter: 2014Q2

REPORT INFORMATION
  Report Type: Spontaneous
  Country: DE (occurrence: DE)
  Receive Date: 20140609
  Receipt Date: 20140609
  Transmission Date: 20141212
  Serious: Yes (Life-Threatening)
  Sender: FDA-Public Use
  Company Number: DE-ELI_LILLY_AND_COMPANY-DE201406000625

PATIENT
  Age: 68 Year
  Sex: Male

DRUGS (26)
  1. ZYPREXA [Suspect]
     Indication: PRODUCT USED FOR UNKNOWN INDICATION
     Dosage: 10 MG, QD
     Route: 048
     Dates: end: 20131022
  2. ZYPREXA [Suspect]
     Dosage: 20 MG, QD
     Route: 048
     Dates: start: 20131023, end: 20131027
  3. ZYPREXA [Suspect]
     Dosage: 15 MG, QD
     Route: 048
     Dates: start: 20131028
  4. DOMINAL [Suspect]
     Indication: PRODUCT USED FOR UNKNOWN INDICATION
     Dosage: 80 MG, QD
     Route: 048
     Dates: end: 20131101
  5. NOVALGINE [Suspect]
     Indication: PRODUCT USED FOR UNKNOWN INDICATION
     Dosage: UNK, UNKNOWN
     Route: 065
     Dates: start: 20131008, end: 20131020
  6. NOVALGINE [Suspect]
     Dosage: UNK, UNKNOWN
     Route: 048
     Dates: start: 20131026, end: 20131028
  7. NOVALGINE [Suspect]
     Dosage: UNK, UNKNOWN
     Route: 048
     Dates: start: 20131030
  8. NOVALGINE [Suspect]
     Dosage: 500 MG, QD
     Route: 048
     Dates: start: 20131103, end: 20131104
  9. LEPONEX [Suspect]
     Indication: PRODUCT USED FOR UNKNOWN INDICATION
     Dosage: 25 MG, QD
     Route: 048
     Dates: start: 20131003, end: 20131007
  10. LEPONEX [Suspect]
     Dosage: 50 MG, QD
     Route: 048
     Dates: start: 20131008, end: 20131009
  11. LEPONEX [Suspect]
     Dosage: 75 MG, QD
     Route: 048
     Dates: start: 20131010, end: 20131011
  12. LEPONEX [Suspect]
     Dosage: 100 MG, QD
     Route: 048
     Dates: start: 20131012, end: 20131013
  13. LEPONEX [Suspect]
     Dosage: 125 MG, QD
     Route: 048
     Dates: start: 20131014, end: 20131015
  14. LEPONEX [Suspect]
     Dosage: 150 MG, QD
     Route: 048
     Dates: start: 20131016, end: 20131020
  15. LEPONEX [Suspect]
     Dosage: 175 MG, QD
     Route: 048
     Dates: start: 20131021, end: 20131022
  16. LEPONEX [Suspect]
     Dosage: 200 MG, QD
     Route: 048
     Dates: start: 20131023, end: 20131023
  17. LEPONEX [Suspect]
     Dosage: 225 MG, QD
     Route: 048
     Dates: start: 20131024, end: 20131025
  18. LEPONEX [Suspect]
     Dosage: 250 MG, QD
     Route: 048
     Dates: start: 20131026, end: 20131027
  19. LEPONEX [Suspect]
     Dosage: 300 MG, QD
     Route: 048
     Dates: start: 20131028, end: 20131031
  20. GLIANIMON [Concomitant]
     Dosage: 20 MG, QD
     Route: 048
  21. PANTOZAL [Concomitant]
     Dosage: 20 MG, QD
     Route: 048
  22. MOTILIUM [Concomitant]
     Dosage: 30 MG, QD
     Route: 048
  23. AKINETON                                /AUS/ [Concomitant]
     Dosage: 4 MG, QD
     Route: 048
  24. PIPAMPERON [Concomitant]
     Dosage: 60 MG, QD
     Route: 048
     Dates: start: 20130927
  25. RISPERDAL [Concomitant]
  26. NOVAMINSULFON [Concomitant]

REACTIONS (2)
  - Agranulocytosis [Recovered/Resolved]
  - Urinary tract infection [Unknown]
